FAERS Safety Report 15618599 (Version 1)
Quarter: 2018Q4

REPORT INFORMATION
  Report Type: Report from Study
  Country: BR (occurrence: BR)
  Receive Date: 20181114
  Receipt Date: 20181114
  Transmission Date: 20190205
  Serious: Yes (Other)
  Sender: FDA-Public Use
  Company Number: BR-JNJFOC-20181118619

PATIENT
  Age: 40 Year
  Sex: Female

DRUGS (5)
  1. AZULFIDINE [Concomitant]
     Active Substance: SULFASALAZINE
     Route: 065
  2. VELIJA [Concomitant]
     Active Substance: DULOXETINE HYDROCHLORIDE
     Route: 065
  3. SIMPONI [Suspect]
     Active Substance: GOLIMUMAB
     Indication: ANKYLOSING SPONDYLITIS
     Route: 058
     Dates: start: 201802, end: 201806
  4. SULFASALAZINE. [Concomitant]
     Active Substance: SULFASALAZINE
     Route: 065
  5. BUP [Concomitant]
     Active Substance: BUPROPION HYDROCHLORIDE
     Route: 065

REACTIONS (1)
  - Pneumonia [Recovered/Resolved]

NARRATIVE: CASE EVENT DATE: 201806
